FAERS Safety Report 9286414 (Version 1)
Quarter: 2013Q2

REPORT INFORMATION
  Report Type: Spontaneous
  Country: US (occurrence: None)
  Receive Date: 20130510
  Receipt Date: 20130510
  Transmission Date: 20140414
  Serious: Yes (Life-Threatening, Hospitalization, Disabling)
  Sender: FDA-Public Use
  Company Number: None

PATIENT
  Age: 80 Year
  Sex: Female
  Weight: 58.97 kg

DRUGS (2)
  1. CIPRO [Suspect]
     Indication: URINARY TRACT INFECTION
     Dosage: 250 2X^S DAY
     Route: 048
     Dates: start: 20121108, end: 20121115
  2. CIPRO [Concomitant]

REACTIONS (5)
  - Polymyositis [None]
  - Constipation [None]
  - Decreased activity [None]
  - Feeling abnormal [None]
  - Depression [None]
